FAERS Safety Report 19497502 (Version 1)
Quarter: 2021Q3

REPORT INFORMATION
  Report Type: Spontaneous
  Country: DE (occurrence: DE)
  Receive Date: 20210706
  Receipt Date: 20210706
  Transmission Date: 20211014
  Serious: Yes (Hospitalization)
  Sender: FDA-Public Use
  Company Number: DE-TEVA-2021-DE-1929512

PATIENT
  Age: 57 Year
  Sex: Female
  Weight: 74 kg

DRUGS (7)
  1. LEVOTHYROXIN?NATRIUM [Concomitant]
     Active Substance: LEVOTHYROXINE SODIUM
     Dosage: .15 MILLIGRAM DAILY; 1?0?0?0
     Route: 048
  2. ACETYLSALICYLSAEURE [Concomitant]
     Active Substance: ASPIRIN
     Dosage: 100 MILLIGRAM DAILY; 0?1?0?0
     Route: 048
  3. RANOLAZIN [Interacting]
     Active Substance: RANOLAZINE
     Dosage: 375 MILLIGRAM DAILY;  0?0?1?0, MEDICATION ERRORS
     Route: 048
  4. PANTOPRAZOL [Concomitant]
     Active Substance: PANTOPRAZOLE SODIUM
     Dosage: 20 MILLIGRAM DAILY; 0?0?1?0
     Route: 048
  5. METOPROLOL. [Concomitant]
     Active Substance: METOPROLOL
     Dosage: 47.5 MILLIGRAM DAILY; 47.5 MG, 0.5?0?0.5?0
     Route: 048
  6. ATORVASTATIN [Suspect]
     Active Substance: ATORVASTATIN
     Dosage: 80 MILLIGRAM DAILY; 0?0?1?0,MEDICATION ERRORS
     Route: 048
  7. EISEN(II)?KOMPLEX [Concomitant]
     Dosage: 100 MILLIGRAM DAILY; 1?0?0?0
     Route: 048

REACTIONS (7)
  - Labelled drug-drug interaction medication error [Unknown]
  - Ocular icterus [Unknown]
  - Muscle spasms [Unknown]
  - Abdominal pain [Unknown]
  - Chromaturia [Unknown]
  - Liver function test abnormal [Unknown]
  - Faeces pale [Unknown]
